FAERS Safety Report 6192442-1 (Version None)
Quarter: 2009Q2

REPORT INFORMATION
  Report Type: 
  Country: None (occurrence: None)
  Receive Date: 20090513
  Receipt Date: 20090428
  Transmission Date: 20091009
  Serious: Yes (Hospitalization)
  Sender: FDA-Public Use
  Company Number: 2008001421

PATIENT
  Age: 57 Year
  Sex: Male

DRUGS (7)
  1. ERLOTINIB                (ERLOTINIB) [Suspect]
     Indication: PANCREATIC CARCINOMA
     Dosage: ORAL
     Route: 048
     Dates: start: 20080206
  2. BEVACIZUMAB [Suspect]
     Indication: PANCREATIC CARCINOMA
     Dates: start: 20080206
  3. CAPECITABINE [Suspect]
     Indication: PANCREATIC CARCINOMA
     Dates: start: 20080206
  4. GEMCITABINE [Suspect]
     Indication: PANCREATIC CARCINOMA
     Dates: start: 20080206
  5. LANZOPRAZOLE [Concomitant]
  6. METOCLOPRAMIDE [Concomitant]
  7. APREPITANT [Concomitant]

REACTIONS (1)
  - PULMONARY EMBOLISM [None]
